FAERS Safety Report 8041910-6 (Version None)
Quarter: 2012Q1

REPORT INFORMATION
  Report Type: 
  Country: None (occurrence: None)
  Receive Date: 20120112
  Receipt Date: 20120112
  Transmission Date: 20120608
  Serious: Yes (Other)
  Sender: FDA-Public Use
  Company Number: None

PATIENT
  Age: 54 Year
  Sex: Male
  Weight: 68.038 kg

DRUGS (1)
  1. SUBOXONE [Suspect]
     Indication: DRUG DEPENDENCE
     Dosage: 8MG.
     Route: 060
     Dates: start: 20111108, end: 20120111

REACTIONS (5)
  - GINGIVITIS [None]
  - PAIN [None]
  - GLOSSODYNIA [None]
  - MOUTH ULCERATION [None]
  - SWELLING [None]
